FAERS Safety Report 14481126 (Version 1)
Quarter: 2018Q1

REPORT INFORMATION
  Report Type: Spontaneous
  Country: US (occurrence: US)
  Receive Date: 20180202
  Receipt Date: 20180202
  Transmission Date: 20180509
  Serious: No
  Sender: FDA-Public Use
  Company Number: US-GLAXOSMITHKLINE-US2018014143

PATIENT
  Sex: Female

DRUGS (1)
  1. FLONASE [Suspect]
     Active Substance: FLUTICASONE PROPIONATE
     Indication: PRODUCT USED FOR UNKNOWN INDICATION
     Dosage: UNK
     Dates: start: 20180119, end: 20180119

REACTIONS (10)
  - Adverse reaction [Unknown]
  - Toothache [Unknown]
  - Discomfort [Unknown]
  - Nasal inflammation [Unknown]
  - Rhinalgia [Recovered/Resolved]
  - Nasal discomfort [Unknown]
  - Drug ineffective [Unknown]
  - Off label use [Unknown]
  - Rhinorrhoea [Recovered/Resolved]
  - Drug interaction [Unknown]
